APPROVED DRUG PRODUCT: DOXEPIN HYDROCHLORIDE
Active Ingredient: DOXEPIN HYDROCHLORIDE
Strength: EQ 75MG BASE
Dosage Form/Route: CAPSULE;ORAL
Application: A217688 | Product #004 | TE Code: AB
Applicant: MICRO LABS LTD
Approved: Jun 27, 2023 | RLD: No | RS: No | Type: RX